FAERS Safety Report 6720285-6 (Version None)
Quarter: 2010Q2

REPORT INFORMATION
  Report Type: 
  Country: None (occurrence: None)
  Receive Date: 20100511
  Receipt Date: 20100414
  Transmission Date: 20101027
  Serious: Yes (Other)
  Sender: FDA-Public Use
  Company Number: PHHY2010US20045

PATIENT
  Sex: Female

DRUGS (4)
  1. DIOVAN [Suspect]
     Dosage: 160 MG, UNK
  2. ZANTAC [Concomitant]
  3. PROZAC [Concomitant]
  4. VITAMIN D [Concomitant]

REACTIONS (8)
  - ASTHENIA [None]
  - COUGH [None]
  - DIZZINESS [None]
  - NAUSEA [None]
  - PRURITUS [None]
  - RASH [None]
  - SKIN MASS [None]
  - SWELLING FACE [None]
